FAERS Safety Report 16743639 (Version 3)
Quarter: 2021Q4

REPORT INFORMATION
  Report Type: Spontaneous
  Country: DE (occurrence: DE)
  Receive Date: 20190827
  Receipt Date: 20211004
  Transmission Date: 20220303
  Serious: Yes (Hospitalization)
  Sender: FDA-Public Use
  Company Number: DE-ADRED-02874-01

PATIENT
  Age: 30 Year
  Sex: Female

DRUGS (2)
  1. GEMCITABINE [Suspect]
     Active Substance: GEMCITABINE
     Indication: Product used for unknown indication
     Dosage: LETZTE GABE 11/2017 ()
     Route: 065
  2. CISPLATIN [Suspect]
     Active Substance: CISPLATIN
     Indication: Product used for unknown indication
     Dosage: LETZTE GABE 11/2017 ()
     Route: 065

REACTIONS (3)
  - Pyrexia [Unknown]
  - Cough [Unknown]
  - Headache [Unknown]
